FAERS Safety Report 8934049 (Version 1)
Quarter: 2012Q4

REPORT INFORMATION
  Report Type: 
  Country: US (occurrence: US)
  Receive Date: 20121129
  Receipt Date: 20121129
  Transmission Date: 20130627
  Serious: No
  Sender: FDA-Public Use
  Company Number: US-BAYER-2012-121992

PATIENT
  Age: 42 Year
  Sex: Male

DRUGS (1)
  1. LEVITRA [Suspect]
     Indication: TRAUMATIC BRAIN INJURY
     Dosage: UNK

REACTIONS (1)
  - Drug ineffective [None]
